FAERS Safety Report 24249284 (Version 3)
Quarter: 2025Q4

REPORT INFORMATION
  Report Type: Spontaneous
  Country: AU (occurrence: AU)
  Receive Date: 20240826
  Receipt Date: 20251013
  Transmission Date: 20260118
  Serious: Yes (Death, Hospitalization, Other)
  Sender: VIIV
  Company Number: AU-VIIV HEALTHCARE LIMITED-AU2024APC105352

PATIENT
  Sex: Male

DRUGS (11)
  1. ABACAVIR [Suspect]
     Active Substance: ABACAVIR
     Indication: HIV infection
     Dosage: UNK
  2. LAMIVUDINE [Suspect]
     Active Substance: LAMIVUDINE
     Indication: HIV infection
     Dosage: UNK
  3. PREZCOBIX [Suspect]
     Active Substance: COBICISTAT\DARUNAVIR ETHANOLATE
     Indication: HIV infection
     Dosage: UNK
  4. SYMTUZA [Suspect]
     Active Substance: COBICISTAT\DARUNAVIR\EMTRICITABINE\TENOFOVIR ALAFENAMIDE
     Indication: HIV infection
     Dosage: UNK
  5. AMPHETAMINE [Suspect]
     Active Substance: AMPHETAMINE
     Indication: Attention deficit hyperactivity disorder
     Dosage: UNK
  6. METHAMPHETAMINE [Suspect]
     Active Substance: METHAMPHETAMINE
     Indication: Product used for unknown indication
     Dosage: UNK
  7. ASPIRIN [Suspect]
     Active Substance: ASPIRIN
     Indication: Coronary ostial stenosis
     Dosage: UNK
  8. HEPARIN SODIUM [Suspect]
     Active Substance: HEPARIN SODIUM
     Indication: Acute myocardial infarction
     Dosage: UNK
  9. TIROFIBAN [Suspect]
     Active Substance: TIROFIBAN
     Indication: Acute myocardial infarction
     Dosage: UNK
  10. TICAGRELOR [Suspect]
     Active Substance: TICAGRELOR
     Indication: Acute myocardial infarction
     Dosage: UNK
  11. DEXTROAMPHETAMINE SULFATE [Suspect]
     Active Substance: DEXTROAMPHETAMINE SULFATE
     Indication: Attention deficit hyperactivity disorder
     Dosage: UNK

REACTIONS (11)
  - Chest pain [Fatal]
  - Shock [Fatal]
  - Coronary artery occlusion [Fatal]
  - Coronary ostial stenosis [Fatal]
  - Coronary artery stenosis [Fatal]
  - Multiple organ dysfunction syndrome [Fatal]
  - Acute myocardial infarction [Fatal]
  - Fatigue [Fatal]
  - Dyspnoea exertional [Fatal]
  - Attention deficit hyperactivity disorder [Fatal]
  - Gastrooesophageal reflux disease [Fatal]
